FAERS Safety Report 14554982 (Version 2)
Quarter: 2018Q1

REPORT INFORMATION
  Report Type: Spontaneous
  Country: CH (occurrence: CH)
  Receive Date: 20180220
  Receipt Date: 20180226
  Transmission Date: 20180509
  Serious: Yes (Hospitalization, Other)
  Sender: FDA-Public Use
  Company Number: CH-GILEAD-2018-0320976

PATIENT
  Age: 84 Year
  Sex: Male

DRUGS (9)
  1. CONCOR [Concomitant]
     Active Substance: BISOPROLOL FUMARATE
  2. LIQUEMINE [Concomitant]
     Active Substance: HEPARIN SODIUM
  3. XARELTO [Concomitant]
     Active Substance: RIVAROXABAN
  4. TOREM                              /01036501/ [Concomitant]
     Active Substance: TORSEMIDE
  5. DUODART [Concomitant]
     Active Substance: DUTASTERIDE\TAMSULOSIN
  6. ELTROXIN [Concomitant]
     Active Substance: LEVOTHYROXINE
  7. ZYDELIG [Suspect]
     Active Substance: IDELALISIB
     Indication: PRODUCT USED FOR UNKNOWN INDICATION
     Route: 048
     Dates: start: 20170701, end: 201801
  8. ISOPTIN                            /00014301/ [Concomitant]
  9. CITALOPRAM MEPHA [Concomitant]
     Active Substance: CITALOPRAM HYDROBROMIDE

REACTIONS (3)
  - Hypovolaemic shock [Recovered/Resolved]
  - Colitis [Recovered/Resolved]
  - Acute kidney injury [Recovered/Resolved]

NARRATIVE: CASE EVENT DATE: 201712
